FAERS Safety Report 25655000 (Version 1)
Quarter: 2025Q3

REPORT INFORMATION
  Report Type: Spontaneous
  Country: US (occurrence: US)
  Receive Date: 20250807
  Receipt Date: 20250807
  Transmission Date: 20251020
  Serious: No
  Sender: SANDOZ
  Company Number: US-SANDOZ-SDZ2025US056037

PATIENT
  Age: 44 Year
  Sex: Male

DRUGS (1)
  1. ALBUTEROL SULFATE [Suspect]
     Active Substance: ALBUTEROL SULFATE
     Indication: Asthma
     Route: 048
     Dates: start: 202507, end: 202507

REACTIONS (2)
  - Product storage error [Unknown]
  - Device malfunction [Unknown]

NARRATIVE: CASE EVENT DATE: 20250701
